FAERS Safety Report 19992556 (Version 2)
Quarter: 2021Q4

REPORT INFORMATION
  Report Type: Spontaneous
  Country: US (occurrence: US)
  Receive Date: 20211026
  Receipt Date: 20211030
  Transmission Date: 20220303
  Serious: Yes (Other)
  Sender: FDA-Public Use
  Company Number: US-DRREDDYS-LIT/USA/21/0142849

PATIENT
  Age: 63 Year
  Sex: Male

DRUGS (5)
  1. ZOLEDRONIC ACID [Suspect]
     Active Substance: ZOLEDRONIC ACID
     Indication: Lung adenocarcinoma
  2. CARBOPLATIN [Suspect]
     Active Substance: CARBOPLATIN
     Indication: Lung adenocarcinoma
  3. VITAMIN B12 [Suspect]
     Active Substance: CYANOCOBALAMIN
     Indication: Lung adenocarcinoma
  4. FOLIC ACID [Suspect]
     Active Substance: FOLIC ACID
     Indication: Lung adenocarcinoma
  5. PEMETREXED [Suspect]
     Active Substance: PEMETREXED
     Indication: Lung adenocarcinoma

REACTIONS (2)
  - Hypocalcaemia [Unknown]
  - Neutropenia [Unknown]
